FAERS Safety Report 17420214 (Version 2)
Quarter: 2020Q1

REPORT INFORMATION
  Report Type: Spontaneous
  Country: US (occurrence: US)
  Receive Date: 20200214
  Receipt Date: 20200313
  Transmission Date: 20200409
  Serious: No
  Sender: FDA-Public Use
  Company Number: US-JNJFOC-20200218595

PATIENT
  Age: 33 Year
  Sex: Female
  Weight: 61.29 kg

DRUGS (2)
  1. TOPAMAX [Suspect]
     Active Substance: TOPIRAMATE
     Indication: COMPULSIONS
     Route: 048
     Dates: start: 201503
  2. LEVORA                             /01278901/ [Concomitant]
     Indication: PRODUCT USED FOR UNKNOWN INDICATION
     Route: 048

REACTIONS (10)
  - Dyslexia [Recovered/Resolved]
  - Off label use [Unknown]
  - Fatigue [Recovered/Resolved]
  - Amnesia [Recovered/Resolved]
  - Abnormal loss of weight [Not Recovered/Not Resolved]
  - Collagen disorder [Unknown]
  - Skin atrophy [Not Recovered/Not Resolved]
  - Dry skin [Recovered/Resolved]
  - Product use in unapproved indication [Unknown]
  - Hair texture abnormal [Not Recovered/Not Resolved]

NARRATIVE: CASE EVENT DATE: 201503
